FAERS Safety Report 23762761 (Version 1)
Quarter: 2024Q2

REPORT INFORMATION
  Report Type: Spontaneous
  Country: FR (occurrence: FR)
  Receive Date: 20240419
  Receipt Date: 20240419
  Transmission Date: 20240716
  Serious: Yes (Hospitalization, Other)
  Sender: FDA-Public Use
  Company Number: FR-Accord-418545

PATIENT
  Age: 77 Year

DRUGS (8)
  1. CARBOPLATIN [Suspect]
     Active Substance: CARBOPLATIN
     Indication: Lung adenocarcinoma
     Dosage: 2 AUC (MG/ML.MIN)
  2. PACLITAXEL [Suspect]
     Active Substance: PACLITAXEL
     Indication: Lung adenocarcinoma
     Dosage: STRENGTH: 300 MG/ 50ML, END OF DAY 15 OF THE 5TH CYCLE
     Dates: start: 20231004, end: 20231004
  3. PACLITAXEL [Suspect]
     Active Substance: PACLITAXEL
     Dosage: STRENGTH: 300 MG/ 50ML, END OF THE FIRST DAY OF THE 6TH CYCLE
     Dates: start: 20231019, end: 20231019
  4. PACLITAXEL [Suspect]
     Active Substance: PACLITAXEL
     Dosage: STRENGTH: 300 MG/ 50ML, ON THE DAY 8 OF THE 6TH CYCLE
     Dates: start: 20231026, end: 20231026
  5. POLARAMINE [Concomitant]
     Active Substance: DEXCHLORPHENIRAMINE MALEATE
     Indication: Product used for unknown indication
  6. RANITIDINE HYDROCHLORIDE [Concomitant]
     Active Substance: RANITIDINE HYDROCHLORIDE
     Indication: Product used for unknown indication
  7. SOLU-MEDROL [Concomitant]
     Active Substance: METHYLPREDNISOLONE SODIUM SUCCINATE
     Indication: Product used for unknown indication
  8. ONDANSETRON [Concomitant]
     Active Substance: ONDANSETRON
     Indication: Product used for unknown indication

REACTIONS (7)
  - Hypovolaemic shock [Recovered/Resolved]
  - Asthenia [Unknown]
  - Vomiting [Unknown]
  - Nausea [Unknown]
  - Malaise [Unknown]
  - Back pain [Recovered/Resolved]
  - Dermatitis allergic [Recovered/Resolved]

NARRATIVE: CASE EVENT DATE: 20231004
